FAERS Safety Report 5537113-7 (Version None)
Quarter: 2007Q4

REPORT INFORMATION
  Report Type: 
  Country: None (occurrence: None)
  Receive Date: 20071205
  Receipt Date: 20071205
  Transmission Date: 20080405
  Serious: Yes (Hospitalization, Other)
  Sender: FDA-Public Use
  Company Number: None

PATIENT
  Age: 78 Year
  Sex: Male
  Weight: 81.6475 kg

DRUGS (2)
  1. CYMBALTA [Suspect]
     Indication: DEPRESSION
     Dosage: 30 MG 1 QD PO
     Route: 048
     Dates: start: 20071001, end: 20071016
  2. CYMBALTA [Suspect]
     Indication: POST HERPETIC NEURALGIA
     Dosage: 60 MG. 1 QD PO
     Route: 048
     Dates: start: 20071017, end: 20071113

REACTIONS (10)
  - ABNORMAL DREAMS [None]
  - ANOREXIA [None]
  - DISORIENTATION [None]
  - DIZZINESS [None]
  - DRUG WITHDRAWAL SYNDROME [None]
  - DYSARTHRIA [None]
  - GAIT DISTURBANCE [None]
  - IRRITABILITY [None]
  - MUSCULAR WEAKNESS [None]
  - SOMNOLENCE [None]
